FAERS Safety Report 14100266 (Version 2)
Quarter: 2018Q4

REPORT INFORMATION
  Report Type: Spontaneous
  Country: US (occurrence: US)
  Receive Date: 20171017
  Receipt Date: 20181224
  Transmission Date: 20190204
  Serious: No
  Sender: FDA-Public Use
  Company Number: PHEH2017US032715

PATIENT
  Age: 15 Year
  Sex: Female

DRUGS (1)
  1. CIPRODEX [Suspect]
     Active Substance: CIPROFLOXACIN HYDROCHLORIDE\DEXAMETHASONE
     Indication: EAR INFECTION
     Dosage: UNK
     Route: 001

REACTIONS (3)
  - Otorrhoea [Unknown]
  - Product quality issue [Unknown]
  - Ear discomfort [Unknown]

NARRATIVE: CASE EVENT DATE: 20170810
